FAERS Safety Report 4972686-4 (Version None)
Quarter: 2006Q1

REPORT INFORMATION
  Report Type: 
  Country: None (occurrence: None)
  Receive Date: 20060215
  Receipt Date: 20051102
  Transmission Date: 20060701
  Serious: No
  Sender: FDA-Public Use
  Company Number: USA0511112567

PATIENT
  Age: 46 Year
  Sex: Male

DRUGS (1)
  1. CIALIS [Suspect]
     Dosage: AS NEEDED

REACTIONS (2)
  - FEELING HOT [None]
  - RASH [None]
